FAERS Safety Report 8214598-9 (Version None)
Quarter: 2012Q1

REPORT INFORMATION
  Report Type: 
  Country: None (occurrence: None)
  Receive Date: 20120316
  Receipt Date: 20120305
  Transmission Date: 20120608
  Serious: Yes (Other)
  Sender: FDA-Public Use
  Company Number: GB-RANBAXY-2011R1-46968

PATIENT
  Age: 22 Year
  Sex: Male

DRUGS (1)
  1. RISPERIDONE [Suspect]
     Indication: SCHIZOPHRENIA
     Dosage: UNK
     Route: 048
     Dates: start: 20101201

REACTIONS (4)
  - TREMOR [None]
  - BLOOD CREATINE PHOSPHOKINASE INCREASED [None]
  - HYPERHIDROSIS [None]
  - FEELING ABNORMAL [None]
